FAERS Safety Report 14123264 (Version 3)
Quarter: 2017Q4

REPORT INFORMATION
  Report Type: Spontaneous
  Country: US (occurrence: US)
  Receive Date: 20171025
  Receipt Date: 20171127
  Transmission Date: 20180321
  Serious: Yes (Hospitalization)
  Sender: FDA-Public Use
  Company Number: US-LPDUSPRD-20171432

PATIENT
  Age: 72 Year
  Sex: Male

DRUGS (6)
  1. CARBOCAINE [Suspect]
     Active Substance: MEPIVACAINE HYDROCHLORIDE
     Dosage: 1 ML
     Route: 058
     Dates: start: 20170925
  2. GEMFIBROZIL. [Concomitant]
     Active Substance: GEMFIBROZIL
     Dosage: 600 MG
     Route: 048
  3. BETAMETHASONE SODIUM PHOSPHATE AND BETAMETHASONE ACETATE INJ SUSP, USP [Suspect]
     Active Substance: BETAMETHASONE ACETATE\BETAMETHASONE SODIUM PHOSPHATE
     Dosage: 0.5 ML
     Route: 058
     Dates: start: 20170925, end: 20170925
  4. OMEPRAZOLE. [Concomitant]
     Active Substance: OMEPRAZOLE
     Dosage: 20 MG
     Route: 048
  5. HYDROCHLOROTHIAZIDE-LISINOPRIL [Concomitant]
     Dosage: 12.5/20 MG
     Route: 048
  6. LIDOCAINE 2% [Suspect]
     Active Substance: LIDOCAINE
     Route: 051
     Dates: start: 20170925

REACTIONS (5)
  - Skin ulcer [Unknown]
  - Bacterial infection [Recovering/Resolving]
  - Off label use [Unknown]
  - Inflammation [Recovering/Resolving]
  - Abscess limb [Unknown]

NARRATIVE: CASE EVENT DATE: 2017
